FAERS Safety Report 5577208-5 (Version None)
Quarter: 2007Q4

REPORT INFORMATION
  Report Type: 
  Country: None (occurrence: None)
  Receive Date: 20071130
  Receipt Date: 20070716
  Transmission Date: 20080405
  Serious: No
  Sender: FDA-Public Use
  Company Number: US200707006513

PATIENT
  Age: 77 Year
  Sex: Female
  Weight: 118.8 kg

DRUGS (3)
  1. BYETTA [Suspect]
     Indication: TYPE 2 DIABETES MELLITUS
     Dosage: SUBCUTANEOUS
     Route: 058
  2. METFORMIN HCL [Concomitant]
  3. GLUCOTROL XL [Concomitant]

REACTIONS (1)
  - BLOOD GLUCOSE INCREASED [None]
